FAERS Safety Report 9531911 (Version 2)
Quarter: 2013Q3

REPORT INFORMATION
  Report Type: Report from Study
  Country: FR (occurrence: FR)
  Receive Date: 20130918
  Receipt Date: 20130918
  Transmission Date: 20140515
  Serious: Yes (Death, Hospitalization)
  Sender: FDA-Public Use
  Company Number: FR-VERTEX PHARMACEUTICALS INC-000000000000000730

PATIENT
  Age: 69 Year
  Sex: Female
  Weight: 89 kg

DRUGS (22)
  1. VX-950 (TELAPREVIR) [Suspect]
     Indication: HEPATITIS C
     Dosage: DOSAGE FORM: TABLET
     Route: 048
     Dates: start: 20110718, end: 20111123
  2. REBETOL [Suspect]
     Indication: HEPATITIS C
     Dosage: 200 MG, QD
     Route: 065
     Dates: start: 20110718
  3. REBETOL [Suspect]
     Dosage: 600 MG, QD
     Route: 065
     Dates: end: 20111123
  4. PEGASYS [Suspect]
     Indication: HEPATITIS C
     Dates: end: 20111123
  5. PEGASYS [Suspect]
     Dosage: 180 ?G, QW
     Dates: start: 20110718
  6. ALDACTONE [Suspect]
     Indication: CARDIAC FAILURE
     Dates: start: 20111223
  7. LASILIX [Suspect]
     Indication: CARDIAC FAILURE
     Dosage: 40 MG, BID
     Dates: start: 20110829
  8. PERINDOPRIL [Concomitant]
     Indication: HYPERTENSION
     Dosage: 4 MG, QD
     Dates: start: 2000
  9. PROPRANOLOL [Concomitant]
     Indication: TACHYCARDIA PAROXYSMAL
     Dosage: 20 MG, BID
     Dates: start: 201104
  10. INEXIUM [Concomitant]
     Indication: PRODUCT USED FOR UNKNOWN INDICATION
     Dosage: 40 MG, QD
     Dates: start: 20120320
  11. LYRICA [Concomitant]
     Indication: NEUROPATHY PERIPHERAL
     Dosage: 200 MG, TID
     Dates: start: 2000
  12. IMOVANE [Concomitant]
     Indication: INSOMNIA
     Dosage: 7.5 MG, QD
     Dates: start: 201201
  13. ATARAX [Concomitant]
     Indication: ANXIETY
     Dosage: 25 MG, QD
     Dates: start: 201201
  14. LANTUS [Concomitant]
     Indication: TYPE 1 DIABETES MELLITUS
     Dosage: VARIABLE DOSE IN THE TIME
     Dates: start: 1998
  15. BACTRIM FORTE [Concomitant]
     Indication: INFECTION
     Dosage: 1 DF, BID
     Dates: start: 20120316
  16. LEVOTHYROX [Concomitant]
     Indication: HYPOTHYROIDISM
     Dates: start: 1995
  17. LEVOTHYROX [Concomitant]
     Dosage: 100 ?G, QD
     Dates: start: 2000
  18. NOVORAPID [Concomitant]
     Indication: TYPE 1 DIABETES MELLITUS
     Dosage: 1 DF, TID
     Dates: start: 1998
  19. NOVORAPID [Concomitant]
     Dosage: 18 IU, BID
     Dates: start: 2000
  20. AVLOCARDYL [Concomitant]
     Indication: VARICES OESOPHAGEAL
     Dosage: 160 MG, QD
     Dates: start: 2000
  21. STILNOX [Concomitant]
     Indication: INSOMNIA
     Dosage: 10 MG, QD
     Dates: start: 2000
  22. LANTUS [Concomitant]
     Indication: TYPE 1 DIABETES MELLITUS
     Dosage: 50 IU, UNK
     Dates: start: 2000

REACTIONS (13)
  - Hepatocellular carcinoma [Fatal]
  - Sepsis [Unknown]
  - Cardiac failure [Recovered/Resolved]
  - Urinary tract infection [Not Recovered/Not Resolved]
  - General physical condition abnormal [Recovered/Resolved]
  - Hepatic encephalopathy [Unknown]
  - Diabetes mellitus inadequate control [Unknown]
  - Urinary retention [Unknown]
  - Portal vein thrombosis [Unknown]
  - Hyperkalaemia [Fatal]
  - Ventricular failure [Unknown]
  - Renal failure acute [Unknown]
  - Anaemia [Not Recovered/Not Resolved]
